FAERS Safety Report 23713140 (Version 4)
Quarter: 2024Q4

REPORT INFORMATION
  Report Type: Spontaneous
  Country: US (occurrence: US)
  Receive Date: 20240405
  Receipt Date: 20241122
  Transmission Date: 20250115
  Serious: Yes (Hospitalization)
  Sender: SANOFI AVENTIS
  Company Number: US-SA-SAC20240405000029

PATIENT
  Age: 81 Year
  Sex: Female
  Weight: 67.1 kg

DRUGS (44)
  1. DUPIXENT [Suspect]
     Active Substance: DUPILUMAB
     Indication: Pulmonary hypertension
     Dosage: 300 MG, QOW
     Route: 058
     Dates: end: 2024
  2. DUPIXENT [Suspect]
     Active Substance: DUPILUMAB
     Indication: Pulmonary arterial hypertension
  3. AMLODIPINE BESYLATE [Concomitant]
     Active Substance: AMLODIPINE BESYLATE
     Dosage: UNK
  4. AMLODIPINE BESYLATE [Concomitant]
     Active Substance: AMLODIPINE BESYLATE
  5. BOSENTAN [Concomitant]
     Active Substance: BOSENTAN
     Dosage: UNK
  6. BOSENTAN [Concomitant]
     Active Substance: BOSENTAN
  7. CYANOCOBALAMIN [Concomitant]
     Active Substance: CYANOCOBALAMIN
     Dosage: UNK
  8. CYANOCOBALAMIN [Concomitant]
     Active Substance: CYANOCOBALAMIN
  9. STELARA [Concomitant]
     Active Substance: USTEKINUMAB
     Dosage: UNK
  10. STELARA [Concomitant]
     Active Substance: USTEKINUMAB
  11. ALBUTEROL SULFATE [Concomitant]
     Active Substance: ALBUTEROL SULFATE
     Dosage: UNK
  12. ALBUTEROL SULFATE [Concomitant]
     Active Substance: ALBUTEROL SULFATE
  13. ISOSORBIDE MONONITRATE [Concomitant]
     Active Substance: ISOSORBIDE MONONITRATE
     Dosage: UNK
  14. RABEPRAZOLE SODIUM [Concomitant]
     Active Substance: RABEPRAZOLE SODIUM
     Dosage: UNK
  15. RABEPRAZOLE SODIUM [Concomitant]
     Active Substance: RABEPRAZOLE SODIUM
  16. GABAPENTIN [Concomitant]
     Active Substance: GABAPENTIN
     Dosage: UNK
  17. GABAPENTIN [Concomitant]
     Active Substance: GABAPENTIN
  18. HUMIRA [Concomitant]
     Active Substance: ADALIMUMAB
     Dosage: UNK
  19. HUMIRA [Concomitant]
     Active Substance: ADALIMUMAB
  20. SYMBICORT [Concomitant]
     Active Substance: BUDESONIDE\FORMOTEROL FUMARATE DIHYDRATE
     Dosage: UNK
  21. SYMBICORT [Concomitant]
     Active Substance: BUDESONIDE\FORMOTEROL FUMARATE DIHYDRATE
  22. BACLOFEN [Concomitant]
     Active Substance: BACLOFEN
     Dosage: UNK
  23. BACLOFEN [Concomitant]
     Active Substance: BACLOFEN
  24. VESICARE [Concomitant]
     Active Substance: SOLIFENACIN SUCCINATE
     Dosage: UNK
  25. VESICARE [Concomitant]
     Active Substance: SOLIFENACIN SUCCINATE
  26. METOPROLOL TARTRATE [Concomitant]
     Active Substance: METOPROLOL TARTRATE
     Dosage: UNK
  27. METOPROLOL TARTRATE [Concomitant]
     Active Substance: METOPROLOL TARTRATE
  28. SPIRONOLACTONE [Concomitant]
     Active Substance: SPIRONOLACTONE
     Dosage: UNK
  29. SPIRONOLACTONE [Concomitant]
     Active Substance: SPIRONOLACTONE
  30. PRIMIDONE [Concomitant]
     Active Substance: PRIMIDONE
     Dosage: UNK
  31. PRIMIDONE [Concomitant]
     Active Substance: PRIMIDONE
  32. ZOCOR [Concomitant]
     Active Substance: SIMVASTATIN
     Dosage: UNK
  33. ZOCOR [Concomitant]
     Active Substance: SIMVASTATIN
  34. EVOXAC [Concomitant]
     Active Substance: CEVIMELINE HYDROCHLORIDE
     Dosage: UNK
  35. EVOXAC [Concomitant]
     Active Substance: CEVIMELINE HYDROCHLORIDE
  36. ANORO ELLIPTA [Concomitant]
     Active Substance: UMECLIDINIUM BROMIDE\VILANTEROL TRIFENATATE
     Dosage: UNK
  37. ANORO ELLIPTA [Concomitant]
     Active Substance: UMECLIDINIUM BROMIDE\VILANTEROL TRIFENATATE
  38. TOLTERODINE TARTRATE [Concomitant]
     Active Substance: TOLTERODINE TARTRATE
     Dosage: 4 G, TID
  39. TOLTERODINE TARTRATE [Concomitant]
     Active Substance: TOLTERODINE TARTRATE
  40. LASIX [Concomitant]
     Active Substance: FUROSEMIDE
  41. OXYGEN [Concomitant]
     Active Substance: OXYGEN
     Dosage: UNK
  42. PLAQUENIL [Concomitant]
     Active Substance: HYDROXYCHLOROQUINE SULFATE
     Dosage: UNK
  43. BENADRYL [Concomitant]
     Active Substance: DIPHENHYDRAMINE HYDROCHLORIDE
  44. PIROXICAM [Concomitant]
     Active Substance: PIROXICAM

REACTIONS (6)
  - Hypotension [Not Recovered/Not Resolved]
  - Dyspnoea [Not Recovered/Not Resolved]
  - Respiratory disorder [Unknown]
  - Sinus disorder [Unknown]
  - Product use in unapproved indication [Unknown]
  - Cough [Unknown]

NARRATIVE: CASE EVENT DATE: 20240101
